FAERS Safety Report 7537246 (Version 4)
Quarter: 2013Q3

REPORT INFORMATION
  Report Type: Spontaneous
  Country: AU (occurrence: US)
  Receive Date: 20100811
  Receipt Date: 20130920
  Transmission Date: 20140515
  Serious: Yes (Life-Threatening, Hospitalization)
  Sender: FDA-Public Use
  Company Number: US-JNJFOC-20100800575

PATIENT
  Age: 46 Year
  Sex: Female
  Weight: 73.48 kg

DRUGS (2)
  1. NUCYNTA [Suspect]
     Indication: ARTHRALGIA
     Dosage: FREQUENCY: EVERY 8 HOURS
     Route: 048
     Dates: start: 20100720, end: 20100727
  2. STEROIDS NOS [Suspect]
     Indication: PRODUCT USED FOR UNKNOWN INDICATION
     Route: 050

REACTIONS (10)
  - Cardiac arrest [Recovered/Resolved]
  - Loss of consciousness [Recovered/Resolved]
  - Dyspnoea [Recovered/Resolved]
  - Pruritus [Recovered/Resolved]
  - Urinary incontinence [Recovered/Resolved]
  - Swelling [Recovered/Resolved]
  - Weight increased [Recovered/Resolved]
  - Hypotension [Recovered/Resolved]
  - Rubber sensitivity [Recovered/Resolved]
  - Aggression [Recovered/Resolved]
